FAERS Safety Report 4530309-2 (Version None)
Quarter: 2004Q4

REPORT INFORMATION
  Report Type: 
  Country: None (occurrence: None)
  Receive Date: 20041217
  Receipt Date: 20040804
  Transmission Date: 20050328
  Serious: Yes (Other)
  Sender: FDA-Public Use
  Company Number: US-ROCHE-376803

PATIENT
  Age: 10 Year
  Sex: Female

DRUGS (9)
  1. ACCUTANE [Suspect]
     Indication: LICHEN SCLEROSUS
     Route: 048
     Dates: start: 19980526, end: 19980616
  2. ACCUTANE [Suspect]
     Route: 048
     Dates: start: 19980616, end: 19990216
  3. ACCUTANE [Suspect]
     Route: 048
     Dates: start: 19990216, end: 19990515
  4. WESTCORT OINTMENT [Concomitant]
     Indication: LICHEN SCLEROSUS
     Dosage: DOSAGE REGIMEN REPORTED AS UP TO BID.
     Dates: start: 19980616
  5. XYLOCAINE CREAM [Concomitant]
     Indication: LICHEN SCLEROSUS
  6. BACTROBAN [Concomitant]
     Indication: LICHEN SCLEROSUS
  7. TEMOVATE [Concomitant]
     Indication: LICHEN SCLEROSUS
  8. WELLBUTRIN [Concomitant]
  9. ADDERALL 10 [Concomitant]

REACTIONS (31)
  - ABDOMINAL PAIN UPPER [None]
  - ARTHRALGIA [None]
  - ARTHRITIS [None]
  - ARTHROPATHY [None]
  - BLOOD CHOLESTEROL INCREASED [None]
  - BLOOD TRIGLYCERIDES INCREASED [None]
  - CHEILITIS [None]
  - COLITIS [None]
  - COLITIS ULCERATIVE [None]
  - DEPRESSION [None]
  - DIARRHOEA [None]
  - FLAT FEET [None]
  - FOLLICULITIS [None]
  - HEADACHE [None]
  - HYPOAESTHESIA [None]
  - ILL-DEFINED DISORDER [None]
  - INFLAMMATORY BOWEL DISEASE [None]
  - INSOMNIA [None]
  - MENSTRUATION IRREGULAR [None]
  - MOOD SWINGS [None]
  - NECK PAIN [None]
  - OEDEMA PERIPHERAL [None]
  - OSTEOCHONDROSIS [None]
  - PAIN IN EXTREMITY [None]
  - RECTAL HAEMORRHAGE [None]
  - REFLEX SYMPATHETIC DYSTROPHY [None]
  - SCOLIOSIS [None]
  - TENDONITIS [None]
  - TENOSYNOVITIS [None]
  - VISION BLURRED [None]
  - VOMITING [None]
